FAERS Safety Report 5863999-2 (Version None)
Quarter: 2008Q3

REPORT INFORMATION
  Report Type: 
  Country: None (occurrence: None)
  Receive Date: 20080829
  Receipt Date: 20080819
  Transmission Date: 20090109
  Serious: Yes (Life-Threatening)
  Sender: FDA-Public Use
  Company Number: GB-ABBOTT-08P-167-0471689-00

PATIENT
  Age: 74 Year
  Sex: Male

DRUGS (4)
  1. DEPAKOTE [Suspect]
     Indication: MANIA
     Route: 065
     Dates: start: 20020424
  2. MIRTAZAPINE [Suspect]
     Indication: MANIA
     Route: 065
     Dates: start: 20020417, end: 20020424
  3. TEMAZEPAM [Suspect]
     Indication: DRUG USE FOR UNKNOWN INDICATION
     Route: 065
     Dates: start: 20020424
  4. FLUOXETINE [Suspect]
     Indication: DEPRESSION
     Route: 065

REACTIONS (4)
  - ELEVATED MOOD [None]
  - FALL [None]
  - SEDATION [None]
  - SUICIDE ATTEMPT [None]
